FAERS Safety Report 9300704 (Version 1)
Quarter: 2013Q2

REPORT INFORMATION
  Report Type: Spontaneous
  Country: US (occurrence: None)
  Receive Date: 20130520
  Receipt Date: 20130520
  Transmission Date: 20140414
  Serious: Yes (Other)
  Sender: FDA-Public Use
  Company Number: None

PATIENT
  Age: 74 Year
  Sex: Male
  Weight: 88.45 kg

DRUGS (1)
  1. GABAPENTIN 300MG CAMBER/IG322 [Suspect]
     Indication: PAIN IN EXTREMITY
     Dosage: 300 MG ONE 3 A DAY
     Dates: start: 20130429

REACTIONS (5)
  - Dizziness [None]
  - Vision blurred [None]
  - Somnolence [None]
  - Asthenia [None]
  - Movement disorder [None]
